FAERS Safety Report 26128973 (Version 1)
Quarter: 2025Q4

REPORT INFORMATION
  Report Type: Spontaneous
  Country: US (occurrence: US)
  Receive Date: 20251208
  Receipt Date: 20251208
  Transmission Date: 20260118
  Serious: Yes (Hospitalization)
  Sender: STRIDES
  Company Number: US-STRIDES ARCOLAB LIMITED-2025SP015272

PATIENT

DRUGS (2)
  1. VERAPAMIL [Suspect]
     Active Substance: VERAPAMIL HYDROCHLORIDE
     Indication: Type 1 diabetes mellitus
     Dosage: UNK
     Route: 065
  2. VERAPAMIL [Suspect]
     Active Substance: VERAPAMIL HYDROCHLORIDE
     Dosage: UNK, AT LEAST 720 MG
     Route: 065

REACTIONS (4)
  - Intentional product misuse [Unknown]
  - Atrioventricular block [Unknown]
  - Off label use [Unknown]
  - Treatment noncompliance [Unknown]
